FAERS Safety Report 8943804 (Version 1)
Quarter: 2012Q4

REPORT INFORMATION
  Report Type: 
  Country: US (occurrence: US)
  Receive Date: 20121203
  Receipt Date: 20121203
  Transmission Date: 20130627
  Serious: No
  Sender: FDA-Public Use
  Company Number: US-ASTRAZENECA-2012SE87348

PATIENT
  Age: 57 Year
  Sex: Male

DRUGS (5)
  1. BRILINTA [Suspect]
     Route: 048
  2. METOPROLOL [Suspect]
     Route: 048
  3. LOSARTAN [Concomitant]
  4. HCTZ [Concomitant]
  5. ASA [Concomitant]

REACTIONS (2)
  - Flushing [Unknown]
  - Burning sensation [Unknown]
